FAERS Safety Report 6814791-3 (Version None)
Quarter: 2010Q3

REPORT INFORMATION
  Report Type: 
  Country: None (occurrence: None)
  Receive Date: 20100702
  Receipt Date: 20100629
  Transmission Date: 20110219
  Serious: Yes (Disabling)
  Sender: FDA-Public Use
  Company Number: A0867543A

PATIENT
  Sex: Female

DRUGS (1)
  1. ROSASOL [Suspect]
     Indication: PRODUCT USED FOR UNKNOWN INDICATION
     Dates: start: 20100510

REACTIONS (7)
  - DERMATITIS CONTACT [None]
  - DISCOMFORT [None]
  - DYSMORPHISM [None]
  - EMOTIONAL DISTRESS [None]
  - FACIAL PAIN [None]
  - INSOMNIA [None]
  - SWELLING FACE [None]
